FAERS Safety Report 8084542-6 (Version None)
Quarter: 2012Q1

REPORT INFORMATION
  Report Type: 
  Country: None (occurrence: None)
  Receive Date: 20120128
  Receipt Date: 20110311
  Transmission Date: 20120608
  Serious: No
  Sender: FDA-Public Use
  Company Number: US-ABBOTT-11P-163-0711968-00

PATIENT
  Sex: Female
  Weight: 69.916 kg

DRUGS (4)
  1. HUMIRA [Suspect]
     Indication: CROHN'S DISEASE
     Route: 058
     Dates: start: 20110101
  2. TRAZODONE HCL [Concomitant]
     Indication: SLEEP DISORDER
     Dosage: AT HOUR OF SLEEP
     Route: 048
  3. PREDNISONE TAB [Concomitant]
     Indication: CROHN'S DISEASE
     Dosage: WEANING DOWN FOR A WHILE
     Route: 048
  4. PREDNISONE TAB [Concomitant]
     Route: 048

REACTIONS (5)
  - NASAL DISCOMFORT [None]
  - NASOPHARYNGITIS [None]
  - COUGH [None]
  - RHINORRHOEA [None]
  - RESPIRATORY TRACT CONGESTION [None]
